FAERS Safety Report 7086642-6 (Version None)
Quarter: 2010Q4

REPORT INFORMATION
  Report Type: 
  Country: None (occurrence: None)
  Receive Date: 20101105
  Receipt Date: 20101006
  Transmission Date: 20110411
  Serious: No
  Sender: FDA-Public Use
  Company Number: US-BAYER-201015714NA

PATIENT
  Age: 63 Year
  Sex: Female
  Weight: 88 kg

DRUGS (6)
  1. EOVIST [Suspect]
     Indication: NUCLEAR MAGNETIC RESONANCE IMAGING ABDOMINAL
     Dosage: TOTAL DAILY DOSE: 10 ML  UNIT DOSE: 10 ML
     Route: 042
     Dates: start: 20100225, end: 20100225
  2. VYTORIN [Concomitant]
  3. LISINOPRIL [Concomitant]
  4. LORTAB [Concomitant]
  5. ZESTORETIC [Concomitant]
  6. CALCIUM WITH VITAMIN D [Concomitant]

REACTIONS (3)
  - DYSGEUSIA [None]
  - NAUSEA [None]
  - RESPIRATION ABNORMAL [None]
